FAERS Safety Report 19003943 (Version 1)
Quarter: 2021Q1

REPORT INFORMATION
  Report Type: Spontaneous
  Country: US (occurrence: US)
  Receive Date: 20210312
  Receipt Date: 20210312
  Transmission Date: 20210420
  Serious: No
  Sender: FDA-Public Use
  Company Number: US-SMITH AND NEPHEW, INC-2020SMT00052

PATIENT

DRUGS (2)
  1. COLLAGENASE SANTYL [Suspect]
     Active Substance: COLLAGENASE CLOSTRIDIUM HISTOLYTICUM
     Indication: WOUND
     Route: 061
  2. BETADINE [Suspect]
     Active Substance: POVIDONE-IODINE
     Indication: WOUND
     Dosage: UNK
     Route: 061

REACTIONS (2)
  - Drug interaction [Recovered/Resolved]
  - Wound secretion [Recovered/Resolved]
